FAERS Safety Report 22142533 (Version 13)
Quarter: 2023Q4

REPORT INFORMATION
  Report Type: Spontaneous
  Country: US (occurrence: US)
  Receive Date: 20230327
  Receipt Date: 20231115
  Transmission Date: 20240110
  Serious: No
  Sender: FDA-Public Use
  Company Number: US-PFIZER INC-202300122817

PATIENT
  Age: 8 Year
  Sex: Male
  Weight: 25.85 kg

DRUGS (5)
  1. GENOTROPIN [Suspect]
     Active Substance: SOMATROPIN
     Indication: Short stature
     Dosage: 1 MG, DAILY (1.0MG - 7 DAYS PER WEEK)
  2. GENOTROPIN [Suspect]
     Active Substance: SOMATROPIN
     Indication: Growth hormone deficiency
     Dosage: 1 MG, DAILY (INJECTION EVERY NIGHT)
     Dates: start: 202302
  3. GENOTROPIN [Suspect]
     Active Substance: SOMATROPIN
     Dosage: 1 MG
  4. GENOTROPIN [Suspect]
     Active Substance: SOMATROPIN
     Dosage: 1 MG, DAILY
  5. GENOTROPIN [Suspect]
     Active Substance: SOMATROPIN
     Dosage: UNK

REACTIONS (8)
  - Poor quality device used [Unknown]
  - Device use issue [Unknown]
  - Drug dose omission by device [Unknown]
  - Malaise [Unknown]
  - Device breakage [Unknown]
  - Device defective [Unknown]
  - Device leakage [Unknown]
  - Device mechanical issue [Unknown]
